FAERS Safety Report 6523839-5 (Version None)
Quarter: 2009Q4

REPORT INFORMATION
  Report Type: 
  Country: None (occurrence: None)
  Receive Date: 20091230
  Receipt Date: 20091230
  Transmission Date: 20100525
  Serious: Yes (Life-Threatening)
  Sender: FDA-Public Use
  Company Number: None

PATIENT
  Age: 44 Year
  Sex: Female
  Weight: 113.3993 kg

DRUGS (1)
  1. TYLENOL ARTHRITIS 650 MG 08AMC002 [Suspect]
     Indication: ARTHRITIS
     Dosage: 1300MG TWICE A DAY PO
     Route: 048
     Dates: start: 20090801, end: 20091228

REACTIONS (3)
  - ECONOMIC PROBLEM [None]
  - GASTROINTESTINAL DISORDER [None]
  - PRODUCT QUALITY ISSUE [None]
